FAERS Safety Report 5398845-7 (Version None)
Quarter: 2007Q3

REPORT INFORMATION
  Report Type: 
  Country: None (occurrence: None)
  Receive Date: 20070727
  Receipt Date: 20070720
  Transmission Date: 20080115
  Serious: Yes (Other)
  Sender: FDA-Public Use
  Company Number: PHBS2007JP12407

PATIENT
  Age: 85 Year

DRUGS (2)
  1. ASPIRIN [Concomitant]
  2. DIOVAN [Suspect]
     Indication: HYPERTENSION
     Route: 048

REACTIONS (4)
  - CEREBRAL INFARCTION [None]
  - MONOPLEGIA [None]
  - NUCLEAR MAGNETIC RESONANCE IMAGING ABNORMAL [None]
  - OEDEMA PERIPHERAL [None]
